FAERS Safety Report 4300059-6 (Version None)
Quarter: 2004Q1

REPORT INFORMATION
  Report Type: 
  Country: None (occurrence: None)
  Receive Date: 20040220
  Receipt Date: 20040206
  Transmission Date: 20041129
  Serious: Yes (Hospitalization)
  Sender: FDA-Public Use
  Company Number: 200410274JP

PATIENT
  Age: 47 Year
  Sex: Female

DRUGS (8)
  1. ARAVA [Suspect]
     Route: 048
     Dates: start: 20031028
  2. RHEUMATREX [Concomitant]
     Indication: MUSCULOSKELETAL PAIN
     Route: 048
     Dates: start: 20030725, end: 20031025
  3. ACINON [Concomitant]
     Route: 048
  4. BENET [Concomitant]
     Indication: OSTEOPOROSIS PROPHYLAXIS
     Route: 048
  5. LOXONIN [Concomitant]
     Indication: MUSCULOSKELETAL PAIN
     Route: 048
  6. PREDNISOLONE [Concomitant]
     Indication: MUSCULOSKELETAL PAIN
     Route: 048
  7. VOLTAREN [Concomitant]
     Indication: MUSCULOSKELETAL PAIN
  8. MUCOSTA [Concomitant]
     Route: 048

REACTIONS (4)
  - ATRIAL FIBRILLATION [None]
  - HEADACHE [None]
  - VENTRICULAR TACHYCARDIA [None]
  - VOMITING [None]
